FAERS Safety Report 8159134-0 (Version None)
Quarter: 2012Q1

REPORT INFORMATION
  Report Type: 
  Country: None (occurrence: None)
  Receive Date: 20120223
  Receipt Date: 20120213
  Transmission Date: 20120608
  Serious: Yes (Other)
  Sender: FDA-Public Use
  Company Number: US-SANOFI-AVENTIS-2012SA009622

PATIENT
  Age: 68 Year
  Sex: Female

DRUGS (11)
  1. ACETAMINOPHEN AND HYDROCODONE BITARTRATE [Concomitant]
     Dosage: 5/50 MG
  2. BENTYL [Concomitant]
  3. DIOVAN [Concomitant]
  4. SPIRONOLACTONE [Concomitant]
  5. PLAVIX [Suspect]
  6. PLAVIX [Suspect]
     Dates: start: 20110201
  7. LASIX [Concomitant]
  8. MULTI-VITAMINS [Concomitant]
  9. RIFAXIMIN [Concomitant]
  10. ZOFRAN [Concomitant]
  11. CARAFATE [Concomitant]

REACTIONS (13)
  - ASCITES [None]
  - HAEMORRHAGIC DIATHESIS [None]
  - VOMITING [None]
  - PAIN [None]
  - NAUSEA [None]
  - EPISTAXIS [None]
  - DIARRHOEA [None]
  - RECTAL HAEMORRHAGE [None]
  - COELIAC ARTERY OCCLUSION [None]
  - ANAEMIA [None]
  - ULCER [None]
  - CONTUSION [None]
  - WEIGHT DECREASED [None]
